FAERS Safety Report 24563510 (Version 2)
Quarter: 2025Q2

REPORT INFORMATION
  Report Type: Spontaneous
  Country: AU (occurrence: AU)
  Receive Date: 20241030
  Receipt Date: 20250527
  Transmission Date: 20250716
  Serious: Yes (Hospitalization, Other)
  Sender: CIPLA
  Company Number: AU-CIPLA LTD.-2024AU12231

PATIENT

DRUGS (10)
  1. EMTRICITABINE\TENOFOVIR [Suspect]
     Active Substance: EMTRICITABINE\TENOFOVIR
     Indication: HIV infection
     Route: 065
  2. DOLUTEGRAVIR [Suspect]
     Active Substance: DOLUTEGRAVIR
     Indication: HIV infection
     Route: 065
  3. SULFAMETHOXAZOLE\TRIMETHOPRIM [Concomitant]
     Active Substance: SULFAMETHOXAZOLE\TRIMETHOPRIM
     Indication: Antifungal prophylaxis
     Route: 065
  4. SULFAMETHOXAZOLE\TRIMETHOPRIM [Concomitant]
     Active Substance: SULFAMETHOXAZOLE\TRIMETHOPRIM
     Indication: Toxoplasmosis
  5. SULFAMETHOXAZOLE\TRIMETHOPRIM [Concomitant]
     Active Substance: SULFAMETHOXAZOLE\TRIMETHOPRIM
     Indication: Prophylaxis
  6. SULFAMETHOXAZOLE\TRIMETHOPRIM [Concomitant]
     Active Substance: SULFAMETHOXAZOLE\TRIMETHOPRIM
     Indication: Opportunistic infection prophylaxis
  7. AZITHROMYCIN [Concomitant]
     Active Substance: AZITHROMYCIN
     Indication: Antifungal prophylaxis
     Route: 065
  8. AZITHROMYCIN [Concomitant]
     Active Substance: AZITHROMYCIN
     Indication: Toxoplasmosis
  9. AZITHROMYCIN [Concomitant]
     Active Substance: AZITHROMYCIN
     Indication: Opportunistic infection prophylaxis
  10. AZITHROMYCIN [Concomitant]
     Active Substance: AZITHROMYCIN
     Indication: Prophylaxis

REACTIONS (18)
  - Dengue fever [Recovering/Resolving]
  - Encephalitis viral [Recovering/Resolving]
  - Confusional state [Recovering/Resolving]
  - Poverty of speech [Recovering/Resolving]
  - Misophonia [Recovering/Resolving]
  - Psychomotor retardation [Recovering/Resolving]
  - Central nervous system lesion [Recovering/Resolving]
  - Neurological decompensation [Recovering/Resolving]
  - Cerebral atrophy [Recovering/Resolving]
  - Status epilepticus [Recovering/Resolving]
  - Basal ganglion degeneration [Recovering/Resolving]
  - Neuronophagia [Recovering/Resolving]
  - Microglial nodules [Recovering/Resolving]
  - Gliosis [Recovering/Resolving]
  - Lymphadenitis [Recovering/Resolving]
  - Central nervous system viral infection [Recovering/Resolving]
  - Immune reconstitution inflammatory syndrome [Recovering/Resolving]
  - Cognitive disorder [Unknown]
